FAERS Safety Report 17079559 (Version 1)
Quarter: 2019Q4

REPORT INFORMATION
  Report Type: Report from Study
  Country: CA (occurrence: CA)
  Receive Date: 20191127
  Receipt Date: 20191127
  Transmission Date: 20200122
  Serious: No
  Sender: FDA-Public Use
  Company Number: CA-BEH-2019109910

PATIENT
  Sex: Male

DRUGS (8)
  1. LYRICA [Concomitant]
     Active Substance: PREGABALIN
  2. HIZENTRA [Suspect]
     Active Substance: HUMAN IMMUNOGLOBULIN G
     Indication: BONE MARROW TRANSPLANT
  3. HIZENTRA [Suspect]
     Active Substance: HUMAN IMMUNOGLOBULIN G
     Indication: NON-HODGKIN^S LYMPHOMA
  4. KETAMINE [Concomitant]
     Active Substance: KETAMINE
     Dosage: UNK, QMT
     Route: 065
  5. ATIVAN [Concomitant]
     Active Substance: LORAZEPAM
  6. DIVALPROEX [Concomitant]
     Active Substance: DIVALPROEX SODIUM
  7. HYDROMORPHONE [Concomitant]
     Active Substance: HYDROMORPHONE
  8. HIZENTRA [Suspect]
     Active Substance: HUMAN IMMUNOGLOBULIN G
     Indication: SECONDARY IMMUNODEFICIENCY
     Dosage: 8 GRAM, QW
     Route: 058
     Dates: start: 20181212

REACTIONS (2)
  - Incorrect drug administration rate [Recovered/Resolved with Sequelae]
  - Injection site mass [Recovered/Resolved with Sequelae]
